FAERS Safety Report 19939515 (Version 1)
Quarter: 2021Q4

REPORT INFORMATION
  Report Type: Spontaneous
  Country: BR (occurrence: BR)
  Receive Date: 20211011
  Receipt Date: 20211011
  Transmission Date: 20220303
  Serious: Yes (Life-Threatening)
  Sender: FDA-Public Use
  Company Number: BR-ORION CORPORATION ORION PHARMA-ENT 2021-0113

PATIENT
  Sex: Female

DRUGS (1)
  1. COMTAN [Suspect]
     Active Substance: ENTACAPONE
     Indication: Product used for unknown indication
     Route: 065

REACTIONS (6)
  - General physical health deterioration [Unknown]
  - Drug dependence [Unknown]
  - Feeling abnormal [Unknown]
  - Parkinsonism [Unknown]
  - Pain [Unknown]
  - Product availability issue [Unknown]
